FAERS Safety Report 11058136 (Version 1)
Quarter: 2015Q2

REPORT INFORMATION
  Report Type: Spontaneous
  Country: US (occurrence: US)
  Receive Date: 20150423
  Receipt Date: 20150423
  Transmission Date: 20150821
  Serious: No
  Sender: FDA-Public Use
  Company Number: US-BAYER-2015-163566

PATIENT
  Age: 31 Year
  Sex: Female

DRUGS (1)
  1. MIRENA [Suspect]
     Active Substance: LEVONORGESTREL
     Dosage: 20 MCG/24HR, CONT
     Route: 015
     Dates: start: 2010

REACTIONS (5)
  - Drug interaction [None]
  - Food allergy [None]
  - Candida infection [Not Recovered/Not Resolved]
  - Reaction to preservatives [None]
  - Histamine intolerance [None]

NARRATIVE: CASE EVENT DATE: 2010
